FAERS Safety Report 23958623 (Version 2)
Quarter: 2025Q1

REPORT INFORMATION
  Report Type: Spontaneous
  Country: FR (occurrence: FR)
  Receive Date: 20240610
  Receipt Date: 20250307
  Transmission Date: 20250408
  Serious: Yes (Hospitalization)
  Sender: TEVA
  Company Number: None

PATIENT
  Age: 70 Year
  Sex: Male

DRUGS (4)
  1. BISOPROLOL [Suspect]
     Active Substance: BISOPROLOL
     Indication: Angina unstable
     Dosage: BISOPROLOL (FUMARATE)
     Route: 048
     Dates: start: 20240331, end: 20240413
  2. TICAGRELOR [Suspect]
     Active Substance: TICAGRELOR
     Indication: Angioplasty
     Dosage: 90MG X2 PER DAY
     Route: 048
     Dates: start: 20240407, end: 20240416
  3. RAMIPRIL [Suspect]
     Active Substance: RAMIPRIL
     Indication: Angina unstable
     Route: 048
     Dates: start: 20240407, end: 20240412
  4. IOBITRIDOL [Suspect]
     Active Substance: IOBITRIDOL
     Indication: Angiocardiogram
     Route: 042
     Dates: start: 20240407, end: 20240407

REACTIONS (2)
  - Rash maculo-papular [Recovered/Resolved]
  - Eosinophilia [Recovered/Resolved]

NARRATIVE: CASE EVENT DATE: 20240414
